FAERS Safety Report 9493122 (Version 1)
Quarter: 2013Q3

REPORT INFORMATION
  Report Type: Spontaneous
  Country: US (occurrence: US)
  Receive Date: 20130902
  Receipt Date: 20130902
  Transmission Date: 20140515
  Serious: Yes (Other)
  Sender: FDA-Public Use
  Company Number: US-AMGEN-USASP2013060721

PATIENT
  Age: 55 Year
  Sex: Female

DRUGS (5)
  1. ENBREL [Suspect]
     Indication: RHEUMATOID ARTHRITIS
     Dosage: 50 MG, QWK
     Route: 065
     Dates: start: 2004
  2. REMICADE [Suspect]
     Indication: PRODUCT USED FOR UNKNOWN INDICATION
     Dosage: UNK
     Route: 065
  3. CHEMOTHERAPEUTICS [Suspect]
     Indication: LUNG NEOPLASM MALIGNANT
     Dosage: UNK
     Route: 065
  4. CHEMOTHERAPEUTICS [Suspect]
     Indication: LYMPHADENOPATHY
  5. METHOTREXATE [Suspect]
     Indication: PRODUCT USED FOR UNKNOWN INDICATION
     Dosage: UNK
     Route: 065

REACTIONS (7)
  - Lung neoplasm malignant [Recovered/Resolved]
  - Vulvovaginal rash [Recovered/Resolved]
  - Rheumatoid arthritis [Recovered/Resolved]
  - Rash [Recovered/Resolved]
  - Malaise [Recovered/Resolved]
  - Memory impairment [Not Recovered/Not Resolved]
  - Lymphadenopathy [Recovered/Resolved]
